FAERS Safety Report 6183791-1 (Version None)
Quarter: 2009Q2

REPORT INFORMATION
  Report Type: 
  Country: None (occurrence: None)
  Receive Date: 20090506
  Receipt Date: 20090506
  Transmission Date: 20091009
  Serious: Yes (Hospitalization)
  Sender: FDA-Public Use
  Company Number: None

PATIENT
  Sex: Male
  Weight: 74.5 kg

DRUGS (2)
  1. CARBOPLATIN [Suspect]
     Dosage: 186 MG
  2. TAXOL [Suspect]
     Dosage: 88.7 MG

REACTIONS (4)
  - DEHYDRATION [None]
  - PAIN [None]
  - PANCYTOPENIA [None]
  - RADIATION OESOPHAGITIS [None]
